FAERS Safety Report 24918009 (Version 1)
Quarter: 2025Q1

REPORT INFORMATION
  Report Type: Spontaneous
  Country: GB (occurrence: GB)
  Receive Date: 20250203
  Receipt Date: 20250203
  Transmission Date: 20250409
  Serious: Yes (Other)
  Sender: PFIZER
  Company Number: None

PATIENT
  Age: 84 Year
  Sex: Male

DRUGS (9)
  1. TAFAMIDIS [Suspect]
     Active Substance: TAFAMIDIS
  2. FOLIC ACID [Concomitant]
     Active Substance: FOLIC ACID
  3. ALENDRONIC ACID [Concomitant]
     Active Substance: ALENDRONIC ACID
  4. FUROSEMIDE [Concomitant]
     Active Substance: FUROSEMIDE
  5. LANSOPRAZOLE [Concomitant]
     Active Substance: LANSOPRAZOLE
  6. LERCANIDIPINE [Concomitant]
     Active Substance: LERCANIDIPINE
  7. LOSARTAN [Concomitant]
     Active Substance: LOSARTAN
  8. PRAVASTATIN [Concomitant]
     Active Substance: PRAVASTATIN
  9. PROCHLORPERAZINE [Concomitant]
     Active Substance: PROCHLORPERAZINE

REACTIONS (1)
  - Diarrhoea [Not Recovered/Not Resolved]
